FAERS Safety Report 25051209 (Version 2)
Quarter: 2025Q1

REPORT INFORMATION
  Report Type: Report from Study
  Country: US (occurrence: US)
  Receive Date: 20250307
  Receipt Date: 20250319
  Transmission Date: 20250409
  Serious: Yes (Other)
  Sender: ABBVIE
  Company Number: US-ABBVIE-6158267

PATIENT
  Age: 68 Year
  Sex: Female
  Weight: 113.39 kg

DRUGS (1)
  1. HUMIRA [Suspect]
     Active Substance: ADALIMUMAB
     Indication: Rheumatoid arthritis
     Route: 058
     Dates: start: 20230329

REACTIONS (6)
  - Dermal cyst [Not Recovered/Not Resolved]
  - Post procedural infection [Unknown]
  - Impaired healing [Not Recovered/Not Resolved]
  - Incision site discharge [Not Recovered/Not Resolved]
  - Pain in extremity [Not Recovered/Not Resolved]
  - Localised infection [Not Recovered/Not Resolved]

NARRATIVE: CASE EVENT DATE: 20241001
